FAERS Safety Report 24465158 (Version 1)
Quarter: 2024Q4

REPORT INFORMATION
  Report Type: Report from Study
  Country: US (occurrence: US)
  Receive Date: 20241018
  Receipt Date: 20241018
  Transmission Date: 20250114
  Serious: No
  Sender: ROCHE
  Company Number: US-ROCHE-3507259

PATIENT
  Age: 41 Year
  Sex: Female

DRUGS (5)
  1. XOLAIR [Suspect]
     Active Substance: OMALIZUMAB
     Indication: Idiopathic urticaria
     Route: 058
  2. XOLAIR [Suspect]
     Active Substance: OMALIZUMAB
  3. CYCLOSPORINE [Concomitant]
     Active Substance: CYCLOSPORINE
     Route: 048
  4. ZYRTEC [Concomitant]
     Active Substance: CETIRIZINE HYDROCHLORIDE
     Dosage: 2 PILLS , 2 DAILY
  5. KENALOG [Concomitant]
     Active Substance: TRIAMCINOLONE ACETONIDE

REACTIONS (2)
  - Off label use [Unknown]
  - No adverse event [Unknown]
